FAERS Safety Report 18122757 (Version 1)
Quarter: 2020Q3

REPORT INFORMATION
  Report Type: Spontaneous
  Country: US (occurrence: US)
  Receive Date: 20200807
  Receipt Date: 20200807
  Transmission Date: 20201103
  Serious: No
  Sender: FDA-Public Use
  Company Number: US-JNJFOC-20200802392

PATIENT
  Age: 41 Year
  Sex: Female

DRUGS (5)
  1. KLONOPIN [Concomitant]
     Active Substance: CLONAZEPAM
     Indication: PRODUCT USED FOR UNKNOWN INDICATION
     Route: 065
  2. ERENUMAB [Concomitant]
     Active Substance: ERENUMAB
     Indication: MIGRAINE
     Route: 065
  3. BOTULINUM TOXIN TYPE A [Concomitant]
     Active Substance: BOTULINUM TOXIN TYPE A
     Indication: MIGRAINE
     Dosage: 200 UNITS SINGLE
     Route: 065
     Dates: start: 20200604
  4. ADVIL [Concomitant]
     Active Substance: IBUPROFEN
     Indication: NECK PAIN
     Route: 065
  5. TYLENOL [Suspect]
     Active Substance: ACETAMINOPHEN
     Indication: NECK PAIN
     Route: 065

REACTIONS (1)
  - Product use in unapproved indication [Unknown]
